FAERS Safety Report 6696276-0 (Version None)
Quarter: 2010Q2

REPORT INFORMATION
  Report Type: 
  Country: None (occurrence: None)
  Receive Date: 20100421
  Receipt Date: 20100407
  Transmission Date: 20101027
  Serious: Yes (Life-Threatening, Hospitalization)
  Sender: FDA-Public Use
  Company Number: 2010SCPR000475

PATIENT
  Age: 67 Year
  Sex: Female

DRUGS (3)
  1. IBUPROFEN [Suspect]
     Indication: OSTEOARTHRITIS
     Dosage: 1600 MG, QD, ORAL
     Route: 048
     Dates: end: 20100120
  2. BENDAMUSTINE (BENDAMUSTINE) UNKNOWN [Suspect]
     Indication: NON-HODGKIN'S LYMPHOMA
     Dosage: INTRAVENOUS
     Route: 042
     Dates: end: 20100113
  3. RITUXIMAB (RITUXIMAB) [Concomitant]

REACTIONS (1)
  - PANCYTOPENIA [None]
